FAERS Safety Report 16712528 (Version 1)
Quarter: 2019Q3

REPORT INFORMATION
  Report Type: Spontaneous
  Country: US (occurrence: US)
  Receive Date: 20190816
  Receipt Date: 20190816
  Transmission Date: 20191004
  Serious: No
  Sender: FDA-Public Use
  Company Number: US-SUNOVION-2019SUN003261

PATIENT
  Age: 40 Year
  Sex: Female
  Weight: 132.43 kg

DRUGS (3)
  1. LATUDA [Suspect]
     Active Substance: LURASIDONE HYDROCHLORIDE
     Dosage: 100 MG, QD ONE LATUDA TABLET 20 MG ADDED TO 80 MG TABLET ONCE DAILY)
     Route: 048
     Dates: start: 2019
  2. LAMICTAL [Concomitant]
     Active Substance: LAMOTRIGINE
     Dosage: 200 MG, QD
     Route: 048
  3. LATUDA [Suspect]
     Active Substance: LURASIDONE HYDROCHLORIDE
     Indication: BIPOLAR DISORDER
     Dosage: 100 MG, QD ONE LATUDA TABLET 20 MG ADDED TO 80 MG TABLET ONCE DAILY)
     Route: 048
     Dates: start: 2017

REACTIONS (4)
  - Muscle twitching [Not Recovered/Not Resolved]
  - Excessive eye blinking [Not Recovered/Not Resolved]
  - Feeling abnormal [Not Recovered/Not Resolved]
  - Tardive dyskinesia [Not Recovered/Not Resolved]
